FAERS Safety Report 25598544 (Version 1)
Quarter: 2025Q3

REPORT INFORMATION
  Report Type: Spontaneous
  Country: US (occurrence: None)
  Receive Date: 20250723
  Receipt Date: 20250723
  Transmission Date: 20251020
  Serious: No
  Sender: Harrow Health
  Company Number: US-HARROW-HAR-2025-US-00161

PATIENT
  Age: 85 Year

DRUGS (4)
  1. FRESHKOTE PRESERVATIVE FREE LUBRICATING EYE DROPS [Suspect]
     Active Substance: POLYVINYL ALCOHOL\POVIDONE
     Indication: Dry eye
     Route: 047
  2. FRESHKOTE PRESERVATIVE FREE LUBRICATING EYE DROPS [Suspect]
     Active Substance: POLYVINYL ALCOHOL\POVIDONE
  3. SYSTANE (HYPROMELLOSE 2910 (4000 MPA.S)) [Concomitant]
     Active Substance: HYPROMELLOSE 2910 (4000 MPA.S)
  4. MURO 128 [Concomitant]
     Active Substance: SODIUM CHLORIDE

REACTIONS (2)
  - Eye pain [Not Recovered/Not Resolved]
  - Foreign body sensation in eyes [Recovered/Resolved]
